FAERS Safety Report 9912876 (Version 1)
Quarter: 2014Q1

REPORT INFORMATION
  Report Type: Spontaneous
  Country: IT (occurrence: None)
  Receive Date: 20140212
  Receipt Date: 20140212
  Transmission Date: 20141002
  Serious: Yes (Other)
  Sender: FDA-Public Use
  Company Number: 2168131

PATIENT
  Age: 38 Year
  Sex: Female

DRUGS (2)
  1. DOCETAXEL [Suspect]
     Indication: BREAST CANCER
     Route: 042
     Dates: start: 20140122, end: 20140122
  2. HERCEPTIN [Concomitant]

REACTIONS (5)
  - Suffocation feeling [None]
  - Nausea [None]
  - Malaise [None]
  - Choking sensation [None]
  - Infusion related reaction [None]
